FAERS Safety Report 24135208 (Version 1)
Quarter: 2024Q3

REPORT INFORMATION
  Report Type: Spontaneous
  Country: US (occurrence: US)
  Receive Date: 20240725
  Receipt Date: 20240725
  Transmission Date: 20241016
  Serious: No
  Sender: BIOGEN
  Company Number: US-BIOGEN-2023BI01220507

PATIENT
  Sex: Female

DRUGS (7)
  1. VUMERITY [Suspect]
     Active Substance: DIROXIMEL FUMARATE
     Indication: Multiple sclerosis
     Dosage: ALSO REPORTED AS 29-AUG-2023
     Route: 050
     Dates: start: 2023
  2. VUMERITY [Suspect]
     Active Substance: DIROXIMEL FUMARATE
     Route: 050
     Dates: end: 202401
  3. VUMERITY [Suspect]
     Active Substance: DIROXIMEL FUMARATE
     Dosage: DOSE REDUCED
     Route: 050
     Dates: start: 202401
  4. VUMERITY [Suspect]
     Active Substance: DIROXIMEL FUMARATE
     Dosage: TAKE 2 CAPSULES (462MG) BY MOUTH TWICE DAILY.
     Route: 050
     Dates: start: 2024
  5. UBIQUINOL [Concomitant]
     Active Substance: UBIQUINOL
     Route: 050
  6. NEXPLANON [Concomitant]
     Active Substance: ETONOGESTREL
     Route: 050
  7. VITAMIN D 400 [Concomitant]
     Route: 050

REACTIONS (18)
  - Tremor [Not Recovered/Not Resolved]
  - Dry throat [Not Recovered/Not Resolved]
  - Throat irritation [Not Recovered/Not Resolved]
  - Frequent bowel movements [Unknown]
  - Headache [Unknown]
  - Hypoaesthesia [Unknown]
  - Gastric ulcer [Unknown]
  - Formication [Unknown]
  - Tinnitus [Unknown]
  - Acne [Unknown]
  - Urinary tract infection [Unknown]
  - Oropharyngeal pain [Unknown]
  - Illness [Unknown]
  - Immune system disorder [Unknown]
  - Flushing [Unknown]
  - Pruritus [Recovered/Resolved]
  - Erythema [Recovered/Resolved]
  - Diarrhoea [Recovered/Resolved]

NARRATIVE: CASE EVENT DATE: 20230101
